FAERS Safety Report 6195790-4 (Version None)
Quarter: 2009Q2

REPORT INFORMATION
  Report Type: 
  Country: None (occurrence: None)
  Receive Date: 20090515
  Receipt Date: 20090504
  Transmission Date: 20091009
  Serious: Yes (Other)
  Sender: FDA-Public Use
  Company Number: 232084K08USA

PATIENT
  Age: 54 Year
  Sex: Female

DRUGS (4)
  1. REBIF [Suspect]
     Indication: MULTIPLE SCLEROSIS
     Dosage: 44 MCG, 3 IN 1 WEEKS, SUBCUTANEOUS
     Route: 058
     Dates: start: 20080707
  2. OPANA [Concomitant]
  3. SYNTHROID [Concomitant]
  4. MAXALT (RIZATRIPTAN) [Concomitant]

REACTIONS (3)
  - BENIGN NEOPLASM [None]
  - RENAL IMPAIRMENT [None]
  - ULNAR NEURITIS [None]
